FAERS Safety Report 6317708-3 (Version None)
Quarter: 2009Q3

REPORT INFORMATION
  Report Type: 
  Country: None (occurrence: None)
  Receive Date: 20090821
  Receipt Date: 20090812
  Transmission Date: 20100115
  Serious: Yes (Other)
  Sender: FDA-Public Use
  Company Number: US-CELGENEUS-163-20785-09080329

PATIENT
  Sex: Male

DRUGS (2)
  1. THALOMID [Suspect]
     Indication: MULTIPLE MYELOMA
     Route: 048
     Dates: start: 20090701, end: 20090701
  2. THALOMID [Suspect]
     Route: 048
     Dates: start: 20090501, end: 20090601

REACTIONS (2)
  - RASH [None]
  - SPINAL COMPRESSION FRACTURE [None]
